FAERS Safety Report 13626938 (Version 1)
Quarter: 2017Q2

REPORT INFORMATION
  Report Type: Spontaneous
  Country: US (occurrence: US)
  Receive Date: 20170608
  Receipt Date: 20170608
  Transmission Date: 20170830
  Serious: No
  Sender: FDA-Public Use
  Company Number: US-GLAXOSMITHKLINE-US2017087160

PATIENT
  Age: 35 Year
  Sex: Male

DRUGS (1)
  1. VENTOLIN HFA [Suspect]
     Active Substance: ALBUTEROL SULFATE
     Indication: SEASONAL ALLERGY
     Dosage: 2 PUFF(S), PRN
     Route: 055

REACTIONS (8)
  - Seasonal allergy [Not Recovered/Not Resolved]
  - Product use in unapproved indication [Unknown]
  - Product cleaning inadequate [Unknown]
  - Drug ineffective for unapproved indication [Unknown]
  - Device use error [Unknown]
  - Condition aggravated [Not Recovered/Not Resolved]
  - Chest discomfort [Not Recovered/Not Resolved]
  - Dyspnoea [Not Recovered/Not Resolved]

NARRATIVE: CASE EVENT DATE: 201705
